FAERS Safety Report 5652503-X (Version None)
Quarter: 2008Q1

REPORT INFORMATION
  Report Type: 
  Country: None (occurrence: None)
  Receive Date: 20080306
  Receipt Date: 20080228
  Transmission Date: 20080703
  Serious: Yes (Hospitalization, Other)
  Sender: FDA-Public Use
  Company Number: CA-JNJFOC-20070105401

PATIENT
  Sex: Female
  Weight: 45.36 kg

DRUGS (9)
  1. TRAMACET [Suspect]
     Indication: HEADACHE
     Route: 048
  2. TRAMACET [Suspect]
     Indication: PAIN
     Dosage: 4/5 TABLETS PER DAY
     Route: 048
  3. PROPRANOLOL [Concomitant]
     Route: 065
  4. PROPRANOLOL [Concomitant]
     Route: 065
  5. DIAZEPAM [Concomitant]
     Dosage: 2.5 - 5MG 4 TIMES A DAY
     Route: 065
  6. LOSEC I.V. [Concomitant]
     Route: 065
  7. MEVACOR [Concomitant]
     Route: 065
  8. CIPROFLOXACIN [Concomitant]
     Indication: INFECTION
     Dosage: AS NEEDED
     Route: 065
  9. WARFARIN SODIUM [Concomitant]
     Route: 065

REACTIONS (9)
  - DIZZINESS [None]
  - EATING DISORDER [None]
  - ELECTROCARDIOGRAM ABNORMAL [None]
  - HEADACHE [None]
  - INSOMNIA [None]
  - THERAPEUTIC RESPONSE UNEXPECTED [None]
  - TINNITUS [None]
  - TRANSIENT ISCHAEMIC ATTACK [None]
  - WITHDRAWAL SYNDROME [None]
